FAERS Safety Report 8203368-3 (Version None)
Quarter: 2012Q1

REPORT INFORMATION
  Report Type: 
  Country: None (occurrence: None)
  Receive Date: 20120312
  Receipt Date: 20120307
  Transmission Date: 20120608
  Serious: Yes (Death)
  Sender: FDA-Public Use
  Company Number: FR-ASTRAZENECA-2012SE03354

PATIENT
  Age: 25656 Day
  Sex: Male

DRUGS (4)
  1. OXAZEPAM [Concomitant]
     Indication: ANXIETY
     Dates: start: 20111213
  2. ESCITALOPRAM OXALATE [Concomitant]
     Indication: DEPRESSION
     Dates: start: 20111101
  3. IMOVANE [Concomitant]
     Indication: SLEEP DISORDER
     Dates: start: 20111213
  4. QUETIAPINE FUMARATE [Suspect]
     Indication: BIPOLAR I DISORDER
     Route: 048
     Dates: start: 20120105

REACTIONS (1)
  - COMPLETED SUICIDE [None]
